FAERS Safety Report 8067138-1 (Version None)
Quarter: 2011Q4

REPORT INFORMATION
  Report Type: 
  Country: None (occurrence: None)
  Receive Date: 20111221
  Receipt Date: 20110627
  Transmission Date: 20120403
  Serious: Yes (Hospitalization)
  Sender: FDA-Public Use
  Company Number: PHHY2010US79495

PATIENT
  Sex: Female
  Weight: 30.8 kg

DRUGS (2)
  1. EXJADE [Suspect]
     Indication: LYMPHATIC SYSTEM NEOPLASM
     Dosage: 1000 MG, QD, ORAL
     Route: 048
     Dates: start: 20100910
  2. EXJADE [Suspect]
     Indication: HAEMATOPOIETIC NEOPLASM
     Dosage: 1000 MG, QD, ORAL
     Route: 048
     Dates: start: 20100910

REACTIONS (1)
  - DIARRHOEA [None]
